FAERS Safety Report 6890577-9 (Version None)
Quarter: 2010Q3

REPORT INFORMATION
  Report Type: 
  Country: None (occurrence: None)
  Receive Date: 20100731
  Receipt Date: 20081216
  Transmission Date: 20110219
  Serious: No
  Sender: FDA-Public Use
  Company Number: US-PFIZER INC-2008088006

PATIENT
  Sex: Male
  Weight: 84.09 kg

DRUGS (7)
  1. LIPITOR [Suspect]
     Indication: BLOOD CHOLESTEROL INCREASED
     Dosage: 10 MG, 1X/DAY
     Route: 048
     Dates: start: 20010101
  2. BENTYL [Concomitant]
     Indication: IRRITABLE BOWEL SYNDROME
  3. VASOTEC [Concomitant]
     Indication: HYPERTENSION
  4. HYDROCHLOROTHIAZIDE [Concomitant]
  5. MULTI-VITAMINS [Concomitant]
  6. FIBRE, DIETARY [Concomitant]
  7. BENADRYL [Concomitant]
     Indication: SLEEP DISORDER

REACTIONS (2)
  - PRODUCT COUNTERFEIT [None]
  - WRONG TECHNIQUE IN DRUG USAGE PROCESS [None]
